FAERS Safety Report 17611004 (Version 1)
Quarter: 2020Q2

REPORT INFORMATION
  Report Type: Report from Study
  Country: US (occurrence: US)
  Receive Date: 20200401
  Receipt Date: 20200401
  Transmission Date: 20200713
  Serious: Yes (Death)
  Sender: FDA-Public Use
  Company Number: US-JNJFOC-NSADSS2002027172

PATIENT
  Age: 72 Year
  Sex: Female
  Weight: 51.7 kg

DRUGS (18)
  1. GENTAMICIN. [Concomitant]
     Active Substance: GENTAMICIN
     Indication: CONJUNCTIVITIS
     Route: 047
     Dates: start: 20011015, end: 20011026
  2. SELENIUM [Concomitant]
     Active Substance: SELENIUM
     Indication: SEBORRHOEA
     Route: 003
  3. CELEXA [Concomitant]
     Active Substance: CITALOPRAM HYDROBROMIDE
     Indication: OBSESSIVE-COMPULSIVE DISORDER
     Route: 048
  4. DURAGESIC [Concomitant]
     Active Substance: FENTANYL
     Indication: PAIN
     Dosage: UNIT DOSE AS 50 MICROGRAMS, DAILY DOSE AS 16,6667 MICROGRAMS
     Route: 062
  5. BISACODYL. [Concomitant]
     Active Substance: BISACODYL
     Indication: CONSTIPATION
     Route: 054
  6. METOCLOPRAMIDE. [Concomitant]
     Active Substance: METOCLOPRAMIDE
     Indication: GASTROOESOPHAGEAL REFLUX DISEASE
     Route: 048
     Dates: end: 20010801
  7. CEPHALEXIN. [Concomitant]
     Active Substance: CEPHALEXIN
     Indication: BRONCHITIS
     Route: 048
     Dates: start: 20011210, end: 20011213
  8. ACETAMINOPHEN. [Concomitant]
     Active Substance: ACETAMINOPHEN
     Indication: PAIN
     Route: 048
  9. MYLANTA [Concomitant]
     Active Substance: ALUMINUM HYDROXIDE\DIMETHICONE\MAGNESIUM HYDROXIDE
     Indication: ABDOMINAL DISCOMFORT
     Route: 048
  10. NIFERRX [Concomitant]
     Indication: ANAEMIA
     Route: 048
     Dates: start: 20010517, end: 20011109
  11. COMPAZINE [Concomitant]
     Active Substance: PROCHLORPERAZINE MALEATE
     Indication: VOMITING
     Route: 041
  12. GENTAMICIN. [Concomitant]
     Active Substance: GENTAMICIN
     Route: 047
     Dates: start: 20011107, end: 20011116
  13. PREVACID [Concomitant]
     Active Substance: LANSOPRAZOLE
     Indication: GASTROOESOPHAGEAL REFLUX DISEASE
     Route: 048
  14. TRAZODONE [Concomitant]
     Active Substance: TRAZODONE HYDROCHLORIDE
     Indication: DEPRESSION
     Route: 048
     Dates: end: 20010731
  15. DARVOCET [Concomitant]
     Active Substance: ACETAMINOPHEN\PROPOXYPHENE HYDROCHLORIDE
     Indication: PAIN
     Route: 048
     Dates: start: 20011218
  16. RISPERDAL [Concomitant]
     Active Substance: RISPERIDONE
     Indication: AGITATION
     Route: 048
     Dates: end: 20010731
  17. CISAPRIDE [Suspect]
     Active Substance: CISAPRIDE
     Indication: GASTROOESOPHAGEAL REFLUX DISEASE
     Route: 048
     Dates: start: 20010803, end: 20020808
  18. LORAZEPAM. [Concomitant]
     Active Substance: LORAZEPAM
     Indication: RESTLESSNESS
     Route: 048

REACTIONS (1)
  - Pneumonia aspiration [Fatal]

NARRATIVE: CASE EVENT DATE: 20020807
